FAERS Safety Report 10073460 (Version 1)
Quarter: 2014Q2

REPORT INFORMATION
  Report Type: Spontaneous
  Country: KR (occurrence: KR)
  Receive Date: 20140411
  Receipt Date: 20140411
  Transmission Date: 20141212
  Serious: Yes (Life-Threatening, Hospitalization)
  Sender: FDA-Public Use
  Company Number: KR-ACTAVIS-2014-06848

PATIENT
  Age: 72 Year
  Sex: Male

DRUGS (4)
  1. OXALIPLATIN (UNKNOWN) [Suspect]
     Indication: GASTRIC CANCER
     Dosage: 85 MG/M2, DAY 1, EVERY 2 WEEKS, 2 CYCLES
     Route: 042
  2. 5-FLUOROURACIL /00098802/ [Interacting]
     Indication: GASTRIC CANCER
     Dosage: 400 MG/M2, 1/TWO WEEKS
     Route: 040
  3. 5-FLUOROURACIL                     /00098802/ [Interacting]
     Dosage: 1500 MG/M2, DAY 1 AND 2, EVERY 2 WEEKS
     Route: 041
  4. LEUCOVORIN                         /00566701/ [Concomitant]
     Indication: GASTRIC CANCER
     Dosage: 75 MG/M2, DAY 1,2 ,EVERY TWO WEEKS
     Route: 041

REACTIONS (3)
  - Torsade de pointes [Recovered/Resolved]
  - Long QT syndrome [Recovered/Resolved]
  - Potentiating drug interaction [Unknown]
